FAERS Safety Report 9231011 (Version 1)
Quarter: 2013Q2

REPORT INFORMATION
  Report Type: Report from Study
  Country: CA (occurrence: CA)
  Receive Date: 20130415
  Receipt Date: 20130415
  Transmission Date: 20140414
  Serious: Yes (Other)
  Sender: FDA-Public Use
  Company Number: CA-JNJFOC-20130404239

PATIENT
  Age: 38 Year
  Sex: Female
  Weight: 58.6 kg

DRUGS (7)
  1. REMICADE [Suspect]
     Indication: CROHN^S DISEASE
     Route: 042
     Dates: start: 20130404
  2. REMICADE [Suspect]
     Indication: CROHN^S DISEASE
     Route: 042
     Dates: start: 20120827
  3. NEXIUM [Concomitant]
     Route: 065
  4. MYFORTIC [Concomitant]
     Route: 065
  5. KCL [Concomitant]
     Route: 065
  6. TACROLIMUS [Concomitant]
     Route: 065
  7. VIT D [Concomitant]
     Route: 065

REACTIONS (5)
  - Fistula [Recovering/Resolving]
  - Local swelling [Recovering/Resolving]
  - Frequent bowel movements [Unknown]
  - Infusion related reaction [Unknown]
  - Hypertension [Unknown]
